FAERS Safety Report 4873624-5 (Version None)
Quarter: 2005Q4

REPORT INFORMATION
  Report Type: 
  Country: None (occurrence: None)
  Receive Date: 20051201
  Receipt Date: 20050824
  Transmission Date: 20060501
  Serious: No
  Sender: FDA-Public Use
  Company Number: 2005PV001501

PATIENT
  Age: 54 Year
  Sex: Female

DRUGS (3)
  1. BYETTA [Suspect]
     Indication: DIABETES MELLITUS NON-INSULIN-DEPENDENT
     Dosage: 5 MCG; 10 MCG : BID, SC
     Route: 058
     Dates: start: 20050725, end: 20050825
  2. BYETTA [Suspect]
     Indication: DIABETES MELLITUS NON-INSULIN-DEPENDENT
     Dosage: 5 MCG; 10 MCG : BID, SC
     Route: 058
     Dates: start: 20050826
  3. GLUCOPHAGE [Concomitant]

REACTIONS (5)
  - INJECTION SITE DISCOLOURATION [None]
  - INJECTION SITE ERYTHEMA [None]
  - INJECTION SITE NODULE [None]
  - NAUSEA [None]
  - WEIGHT DECREASED [None]
